FAERS Safety Report 10672409 (Version 8)
Quarter: 2018Q3

REPORT INFORMATION
  Report Type: Report from Study
  Country: KR (occurrence: KR)
  Receive Date: 20141223
  Receipt Date: 20180730
  Transmission Date: 20181010
  Serious: Yes (Hospitalization)
  Sender: FDA-Public Use
  Company Number: KR-PFIZER INC-2014351983

PATIENT
  Age: 78 Year
  Sex: Male
  Weight: 55 kg

DRUGS (15)
  1. DEXTROSE. [Concomitant]
     Active Substance: DEXTROSE
     Dosage: 1000 ML, SINGLE ONCE
     Route: 042
     Dates: start: 20141020, end: 20141023
  2. POTASSIUM CHLORIDE. [Concomitant]
     Active Substance: POTASSIUM CHLORIDE
     Indication: PROPHYLAXIS
     Dosage: 10 ML, DAILY EVERY DAY
     Route: 042
     Dates: start: 20141020, end: 20141023
  3. ITOPRIDE /01527102/ [Concomitant]
     Indication: VOMITING
     Dosage: 50 MG, 3X/DAY
     Route: 048
     Dates: start: 20141120, end: 20141122
  4. POLYETHYLENE GLYCOL [Concomitant]
     Active Substance: POLYETHYLENE GLYCOLS
     Indication: PREMEDICATION
     Dosage: 4 L, SINGLE ONCE
     Route: 048
     Dates: start: 20141019, end: 20141019
  5. AMINO ACID [Concomitant]
     Active Substance: AMINO ACIDS
     Dosage: 500 ML, SINGLE ONCE
     Route: 042
     Dates: start: 20141106, end: 20141106
  6. PETHIDINE HCL [Concomitant]
     Indication: PREMEDICATION
     Dosage: 25 MG, SINGLE ONCE
     Route: 042
     Dates: start: 20141017, end: 20141017
  7. SODIUM CHLORIDE. [Concomitant]
     Active Substance: SODIUM CHLORIDE
     Indication: PROPHYLAXIS
     Dosage: 40 ML, DAILY EVERY DAY
     Route: 042
     Dates: start: 20141020, end: 20141023
  8. ACETAMINOPHEN. [Concomitant]
     Active Substance: ACETAMINOPHEN
     Indication: PROPHYLAXIS
     Dosage: 1300 MG, 3X/DAY ENCAPSULATED
     Route: 048
     Dates: start: 20141017, end: 20141018
  9. DOMPERIDONE MALEATE [Concomitant]
     Active Substance: DOMPERIDONE MALEATE
     Dosage: 10 MG, 3X/DAY
     Route: 048
     Dates: start: 20141103, end: 20141105
  10. ACETYLCYSTEINE. [Concomitant]
     Active Substance: ACETYLCYSTEINE
     Indication: PROPHYLAXIS
     Dosage: 600 MG, 2X/DAY
     Route: 048
     Dates: start: 20141017, end: 20141019
  11. LOPERAMIDE OXIDE [Concomitant]
     Active Substance: LOPERAMIDE OXIDE
     Dosage: 2 MG, 3X/DAY
     Route: 048
     Dates: start: 20141103, end: 20141105
  12. DEXTROSE + SODIUM CHLORIDE [Concomitant]
     Dosage: 1000 ML, SINGLE ONCE
     Route: 042
     Dates: start: 20141106, end: 20141106
  13. BOSUTINIB [Suspect]
     Active Substance: BOSUTINIB
     Indication: CHRONIC MYELOID LEUKAEMIA
     Dosage: 400 MG, 1X/DAY
     Route: 048
     Dates: start: 20141023, end: 20141105
  14. BOSUTINIB [Suspect]
     Active Substance: BOSUTINIB
     Dosage: 400 MG, 1X/DAY
     Route: 048
     Dates: start: 20141120, end: 20141217
  15. PROPOFOL. [Concomitant]
     Active Substance: PROPOFOL
     Indication: PREMEDICATION
     Dosage: 40 ML, SINGLE ONCE
     Route: 042
     Dates: start: 20141020, end: 20141020

REACTIONS (1)
  - Haematuria [Recovered/Resolved]

NARRATIVE: CASE EVENT DATE: 20141215
